FAERS Safety Report 5512587-6 (Version None)
Quarter: 2007Q4

REPORT INFORMATION
  Report Type: 
  Country: None (occurrence: None)
  Receive Date: 20071112
  Receipt Date: 20071108
  Transmission Date: 20080405
  Serious: Yes (Disabling)
  Sender: FDA-Public Use
  Company Number: JP-SP-2007-03595

PATIENT
  Age: 67 Year
  Sex: Male

DRUGS (3)
  1. IMMUCYST [Suspect]
     Indication: URETERIC CANCER
     Route: 043
     Dates: start: 20070828, end: 20071003
  2. IMMUCYST [Suspect]
     Route: 043
     Dates: start: 20070828, end: 20071003
  3. IMMUCYST [Suspect]
     Route: 043
     Dates: start: 20070828, end: 20071003

REACTIONS (3)
  - ABDOMINAL PAIN LOWER [None]
  - PYREXIA [None]
  - URGE INCONTINENCE [None]
